FAERS Safety Report 17952469 (Version 1)
Quarter: 2020Q2

REPORT INFORMATION
  Report Type: Spontaneous
  Country: US (occurrence: US)
  Receive Date: 20200627
  Receipt Date: 20200627
  Transmission Date: 20200714
  Serious: No
  Sender: FDA-Public Use
  Company Number: US-ASTRAZENECA-2020SE78466

PATIENT
  Age: 23346 Day
  Sex: Female
  Weight: 49 kg

DRUGS (4)
  1. FASENRA [Suspect]
     Active Substance: BENRALIZUMAB
     Indication: ASTHMA
     Dosage: 30MG/ML EVERY EIGHT WEEKS
     Route: 058
     Dates: start: 20191231
  2. PREDNISONE. [Concomitant]
     Active Substance: PREDNISONE
     Indication: ASTHMA
     Dosage: 10.0MG AS REQUIRED
  3. PREDNISONE. [Concomitant]
     Active Substance: PREDNISONE
     Indication: HYPERSENSITIVITY
     Dosage: 10.0MG AS REQUIRED
  4. FASENRA [Suspect]
     Active Substance: BENRALIZUMAB
     Indication: HYPERSENSITIVITY
     Dosage: 30MG/ML EVERY EIGHT WEEKS
     Route: 058
     Dates: start: 20191231

REACTIONS (4)
  - Asthma [Not Recovered/Not Resolved]
  - Incorrect dose administered [Not Recovered/Not Resolved]
  - Anxiety [Unknown]
  - Device issue [Unknown]

NARRATIVE: CASE EVENT DATE: 20200617
